FAERS Safety Report 16705096 (Version 1)
Quarter: 2019Q3

REPORT INFORMATION
  Report Type: Spontaneous
  Country: US (occurrence: US)
  Receive Date: 20190815
  Receipt Date: 20190815
  Transmission Date: 20191004
  Serious: No
  Sender: FDA-Public Use
  Company Number: US-JNJFOC-20190801994

PATIENT
  Sex: Female

DRUGS (2)
  1. ZYRTEC [Suspect]
     Active Substance: CETIRIZINE HYDROCHLORIDE
     Indication: ECZEMA
     Dosage: 1 TABLET ONCE A DAY WHEN NEEDED
     Route: 048
     Dates: end: 20190718
  2. BENADRYL ALLERGY ULTRATAB [Suspect]
     Active Substance: DIPHENHYDRAMINE HYDROCHLORIDE
     Indication: ECZEMA
     Dosage: 1 TABLET TWICE DAILY WHEN NEEDED
     Route: 065
     Dates: end: 20190718

REACTIONS (3)
  - Allergic reaction to excipient [Recovering/Resolving]
  - Off label use [Unknown]
  - Product use in unapproved indication [Recovering/Resolving]
